FAERS Safety Report 21975926 (Version 3)
Quarter: 2023Q2

REPORT INFORMATION
  Report Type: Spontaneous
  Country: US (occurrence: US)
  Receive Date: 20230210
  Receipt Date: 20230614
  Transmission Date: 20230721
  Serious: No
  Sender: FDA-Public Use
  Company Number: US-SA-SAC20230209001001

PATIENT
  Age: 79 Year
  Sex: Female

DRUGS (1)
  1. DUPIXENT [Suspect]
     Active Substance: DUPILUMAB
     Indication: Asthma
     Dosage: 300 MG, Q4W
     Route: 058

REACTIONS (2)
  - Inappropriate schedule of product administration [Unknown]
  - Off label use [Unknown]

NARRATIVE: CASE EVENT DATE: 20230608
